FAERS Safety Report 10050550 (Version 1)
Quarter: 2014Q2

REPORT INFORMATION
  Report Type: Spontaneous
  Country: US (occurrence: US)
  Receive Date: 20140401
  Receipt Date: 20140401
  Transmission Date: 20141212
  Serious: No
  Sender: FDA-Public Use
  Company Number: US-ASTRAZENECA-2013SE93142

PATIENT
  Age: 19625 Day
  Sex: Male
  Weight: 113.4 kg

DRUGS (14)
  1. NEXIUM [Suspect]
     Indication: GASTROOESOPHAGEAL REFLUX DISEASE
     Route: 048
     Dates: start: 2008
  2. NEXIUM [Suspect]
     Indication: GASTROOESOPHAGEAL REFLUX DISEASE
     Route: 048
  3. LISINOPRIL [Suspect]
     Indication: HYPERTENSION
     Route: 048
  4. AMLODIPINE [Concomitant]
     Indication: BLOOD PRESSURE
     Route: 048
  5. FENOFIBRATE [Concomitant]
  6. LANTUS [Concomitant]
     Indication: DIABETES MELLITUS
     Route: 058
  7. MICOFENELATE [Concomitant]
  8. IRON [Concomitant]
  9. MAGNESIUM [Concomitant]
  10. NOVALOG [Concomitant]
     Indication: DIABETES MELLITUS
  11. TICROLAMIS [Concomitant]
  12. PRAVASTATIN [Concomitant]
     Indication: BLOOD CHOLESTEROL
  13. PREDNISONE [Concomitant]
  14. VITAMINS [Concomitant]

REACTIONS (3)
  - Gastrooesophageal reflux disease [Unknown]
  - Drug ineffective [Unknown]
  - Intentional product misuse [Unknown]
